FAERS Safety Report 11513583 (Version 1)
Quarter: 2015Q3

REPORT INFORMATION
  Report Type: Spontaneous
  Country: US (occurrence: US)
  Receive Date: 20150903
  Receipt Date: 20150903
  Transmission Date: 20151125
  Serious: No
  Sender: FDA-Public Use
  Company Number: US-ELI_LILLY_AND_COMPANY-US201210009399

PATIENT
  Age: 47 Year
  Sex: Female

DRUGS (1)
  1. CYMBALTA [Suspect]
     Active Substance: DULOXETINE HYDROCHLORIDE
     Indication: DEPRESSED MOOD
     Dosage: 20 MG, QD
     Dates: start: 201110

REACTIONS (10)
  - Drug withdrawal syndrome [Unknown]
  - Disorientation [Unknown]
  - Intentional product misuse [Unknown]
  - Headache [Not Recovered/Not Resolved]
  - Oropharyngeal pain [Unknown]
  - Palpitations [Unknown]
  - Sleep disorder [Unknown]
  - Gastroenteritis viral [Not Recovered/Not Resolved]
  - Paraesthesia [Unknown]
  - Diarrhoea [Unknown]
